FAERS Safety Report 23708870 (Version 2)
Quarter: 2024Q2

REPORT INFORMATION
  Report Type: Report from Study
  Country: US (occurrence: US)
  Receive Date: 20240404
  Receipt Date: 20240416
  Transmission Date: 20240716
  Serious: No
  Sender: FDA-Public Use
  Company Number: US-TAIHOP-2024-003276

PATIENT
  Age: 68 Year
  Sex: Male
  Weight: 74.66 kg

DRUGS (1)
  1. LONSURF [Suspect]
     Active Substance: TIPIRACIL HYDROCHLORIDE\TRIFLURIDINE
     Indication: Colon cancer
     Dosage: FORM STRENGTH AND CYCLE UNKNOWN.
     Route: 048
     Dates: start: 20240126

REACTIONS (1)
  - Toxicity to various agents [Unknown]
